FAERS Safety Report 8849459 (Version 1)
Quarter: 2012Q4

REPORT INFORMATION
  Report Type: Spontaneous
  Country: US (occurrence: None)
  Receive Date: 20121017
  Receipt Date: 20121017
  Transmission Date: 20130627
  Serious: Yes (Death, Life-Threatening, Hospitalization, Other)
  Sender: FDA-Public Use
  Company Number: GER/SWE/12/0026183

PATIENT
  Age: 78 Year
  Sex: Female

DRUGS (16)
  1. CLOPIDOGREL [Suspect]
  2. TROMBYL (ACETYLSALICYLIC ACID) [Suspect]
  3. ANGIOX (BIVALIRUDIN) [Suspect]
     Dosage: 1 in 1 D) (not  otherwise specified)
     Route: 042
     Dates: start: 20120718, end: 20120718
  4. BRILIQUE (TICAGRELOR) [Suspect]
     Dates: start: 201207
  5. WARFARIN (WARFARIN) [Suspect]
  6. INNOHEP (TINZAPARIN SODIUM) [Suspect]
  7. SIMVASTATIN (SIMVASTATIN) [Concomitant]
  8. NEXIUM (ESOMEPRAZOLE MAGNESIUM) [Concomitant]
  9. ENALAPRIL (ENALAPRIL) [Concomitant]
  10. CEFOTAXIME (CEFOTAXIME) [Concomitant]
  11. SELOKEN (METOPROLOL TARTRATE) [Concomitant]
  12. ALVEDON (PARACETAMOL) [Concomitant]
  13. KAJOS (POTASSIUM CITRATE) [Concomitant]
  14. DIGOXIN (DIGOXIN) [Concomitant]
  15. FURIX (FUROSEMIDE) [Concomitant]
  16. GLYTRIN (GLYCERYL TRINITRATE) [Concomitant]

REACTIONS (11)
  - Heart rate increased [None]
  - Acute myocardial infarction [None]
  - Coronary artery stenosis [None]
  - Cardiac failure [None]
  - Respiratory failure [None]
  - Pulmonary hypertension [None]
  - Tricuspid valve incompetence [None]
  - Pulmonary alveolar haemorrhage [None]
  - Acute respiratory distress syndrome [None]
  - Endocarditis [None]
  - Septic embolus [None]
